FAERS Safety Report 6279253-3 (Version None)
Quarter: 2009Q3

REPORT INFORMATION
  Report Type: 
  Country: None (occurrence: None)
  Receive Date: 20090717
  Receipt Date: 20090717
  Transmission Date: 20100115
  Serious: Yes (Other)
  Sender: FDA-Public Use
  Company Number: None

PATIENT
  Age: 41 Year
  Sex: Female
  Weight: 58.9676 kg

DRUGS (2)
  1. ETODOLAC [Suspect]
     Indication: MUSCULOSKELETAL STIFFNESS
     Dosage: 1 TABLET 2X PER DAY PO
     Route: 048
     Dates: start: 20090708, end: 20090709
  2. ETODOLAC [Suspect]
     Indication: NECK PAIN
     Dosage: 1 TABLET 2X PER DAY PO
     Route: 048
     Dates: start: 20090708, end: 20090709

REACTIONS (4)
  - FATIGUE [None]
  - HYPOAESTHESIA FACIAL [None]
  - HYPOAESTHESIA ORAL [None]
  - PRURITUS [None]
